FAERS Safety Report 9983129 (Version 1)
Quarter: 2014Q1

REPORT INFORMATION
  Report Type: Report from Study
  Country: US (occurrence: US)
  Receive Date: 20140307
  Receipt Date: 20140307
  Transmission Date: 20141002
  Serious: No
  Sender: FDA-Public Use
  Company Number: US-ABBVIE-13P-163-1179744-00

PATIENT
  Age: 50 Year
  Sex: Female

DRUGS (8)
  1. HUMIRA [Suspect]
     Indication: COLITIS ULCERATIVE
     Dates: start: 20131209, end: 20131209
  2. APRISO [Concomitant]
     Indication: COLITIS ULCERATIVE
  3. METOFORMIN [Concomitant]
     Indication: DIABETES MELLITUS
  4. LISINOPRIL [Concomitant]
     Indication: HYPERTENSION
  5. BUSPIRONE [Concomitant]
     Indication: ANXIETY
  6. VITAMIN B 12 [Concomitant]
     Indication: PARAESTHESIA
  7. FERROUS SULFATE [Concomitant]
     Indication: BLOOD TRIGLYCERIDES
  8. FISH OIL [Concomitant]
     Indication: BLOOD TRIGLYCERIDES

REACTIONS (3)
  - Eye swelling [Not Recovered/Not Resolved]
  - Eye pruritus [Not Recovered/Not Resolved]
  - Drug ineffective [Not Recovered/Not Resolved]
